FAERS Safety Report 5801550-3 (Version None)
Quarter: 2008Q3

REPORT INFORMATION
  Report Type: 
  Country: None (occurrence: None)
  Receive Date: 20080702
  Receipt Date: 20080618
  Transmission Date: 20090109
  Serious: Yes (Hospitalization)
  Sender: FDA-Public Use
  Company Number: TRP_05783_2008

PATIENT
  Age: 48 Year
  Sex: Female
  Weight: 94.3482 kg

DRUGS (8)
  1. INFERGEN [Suspect]
     Indication: HEPATITIS C
     Dosage: (15 ?G QD SUBCUTANEOUS)
     Route: 058
     Dates: start: 20080101, end: 20080601
  2. RIBAVIRIN [Suspect]
     Indication: HEPATITIS C
     Dosage: (800 MG QD ORAL)
     Route: 048
     Dates: start: 20080101, end: 20080601
  3. STRATTERA [Concomitant]
  4. SYNTHROID [Concomitant]
  5. TEGRETOL [Concomitant]
  6. LUVOX [Concomitant]
  7. PERCOCET [Concomitant]
  8. PROMETHAZINE [Concomitant]

REACTIONS (1)
  - PULMONARY EMBOLISM [None]
